FAERS Safety Report 21751754 (Version 1)
Quarter: 2022Q4

REPORT INFORMATION
  Report Type: Spontaneous
  Country: US (occurrence: US)
  Receive Date: 20221220
  Receipt Date: 20221220
  Transmission Date: 20230113
  Serious: No
  Sender: FDA-Public Use
  Company Number: US-SANOFI-01409034

PATIENT
  Age: 45 Year
  Sex: Male

DRUGS (1)
  1. LEMTRADA [Suspect]
     Active Substance: ALEMTUZUMAB
     Dosage: UNK
     Dates: start: 2020, end: 20200529

REACTIONS (1)
  - Urinary tract infection [Unknown]
